FAERS Safety Report 11242541 (Version 1)
Quarter: 2015Q3

REPORT INFORMATION
  Report Type: Spontaneous
  Country: IT (occurrence: IT)
  Receive Date: 20150707
  Receipt Date: 20150707
  Transmission Date: 20151125
  Serious: Yes (Other)
  Sender: FDA-Public Use
  Company Number: IT-ASTRAZENECA-2015SE64333

PATIENT
  Age: 14072 Day
  Sex: Male

DRUGS (2)
  1. SEROQUEL [Suspect]
     Active Substance: QUETIAPINE FUMARATE
     Indication: DRUG ABUSE
     Route: 048
     Dates: start: 20140803
  2. DELORAZEPAM [Suspect]
     Active Substance: DELORAZEPAM
     Indication: DRUG ABUSE
     Route: 048
     Dates: start: 20140803, end: 20140803

REACTIONS (3)
  - Poverty of speech [Unknown]
  - Coma [Unknown]
  - Sopor [Unknown]

NARRATIVE: CASE EVENT DATE: 20140803
